FAERS Safety Report 17534946 (Version 1)
Quarter: 2020Q1

REPORT INFORMATION
  Report Type: Spontaneous
  Country: IT (occurrence: IT)
  Receive Date: 20200313
  Receipt Date: 20200313
  Transmission Date: 20200409
  Serious: Yes (Other)
  Sender: FDA-Public Use
  Company Number: IT-TEVA-2020-IT-1199031

PATIENT
  Age: 73 Year
  Sex: Male

DRUGS (7)
  1. CARDURA [Concomitant]
     Active Substance: DOXAZOSIN MESYLATE
  2. SELOKEN 100 MG COMPRESSE [Concomitant]
     Active Substance: METOPROLOL
  3. PARIET [Concomitant]
     Active Substance: RABEPRAZOLE SODIUM
  4. CARDIRENE [Concomitant]
     Active Substance: ASPIRIN DL-LYSINE
  5. TORVAST 40 MG COMPRESSE MASTICABILI [Concomitant]
  6. RAMIPRIL. [Suspect]
     Active Substance: RAMIPRIL
     Indication: HYPERTENSION
     Dosage: 5 MG
     Route: 048
     Dates: start: 20190102, end: 20200102
  7. HIROBRIZ BREEZHALER [Concomitant]
     Active Substance: INDACATEROL MALEATE

REACTIONS (2)
  - Productive cough [Recovering/Resolving]
  - Angioedema [Recovering/Resolving]

NARRATIVE: CASE EVENT DATE: 20200102
